FAERS Safety Report 7075415-6 (Version None)
Quarter: 2010Q4

REPORT INFORMATION
  Report Type: 
  Country: None (occurrence: None)
  Receive Date: 20101030
  Receipt Date: 20100831
  Transmission Date: 20110411
  Serious: No
  Sender: FDA-Public Use
  Company Number: US-WYE-H17276810

PATIENT
  Sex: Female

DRUGS (1)
  1. PRISTIQ [Suspect]
     Indication: DEPRESSION
     Route: 048
     Dates: end: 20100731

REACTIONS (4)
  - DRUG WITHDRAWAL SYNDROME [None]
  - FEELING ABNORMAL [None]
  - NAUSEA [None]
  - VOMITING [None]
